FAERS Safety Report 5206510-1 (Version None)
Quarter: 2006Q4

REPORT INFORMATION
  Report Type: 
  Country: None (occurrence: None)
  Receive Date: 20061026
  Receipt Date: 20060815
  Transmission Date: 20070319
  Serious: No
  Sender: FDA-Public Use
  Company Number: 2006083284

PATIENT
  Age: 43 Year
  Sex: Female
  Weight: 53.978 kg

DRUGS (4)
  1. LYRICA [Suspect]
     Indication: DYSAESTHESIA
     Dosage: 300 MG (150 MG, 2 IN 1 D)
     Dates: start: 20060415
  2. LYRICA [Suspect]
     Indication: NEURALGIA
     Dosage: 300 MG (150 MG, 2 IN 1 D)
     Dates: start: 20060415
  3. WELLBUTRIN [Concomitant]
  4. ATIVAN [Concomitant]

REACTIONS (4)
  - DRUG INEFFECTIVE [None]
  - INCREASED APPETITE [None]
  - WEIGHT FLUCTUATION [None]
  - WEIGHT INCREASED [None]
